FAERS Safety Report 4870903-2 (Version None)
Quarter: 2006Q1

REPORT INFORMATION
  Report Type: 
  Country: None (occurrence: None)
  Receive Date: 20060103
  Receipt Date: 20051229
  Transmission Date: 20060701
  Serious: Yes (Life-Threatening, Hospitalization)
  Sender: FDA-Public Use
  Company Number: DE-BRISTOL-MYERS SQUIBB COMPANY-13232624

PATIENT
  Age: 55 Year
  Sex: Female
  Weight: 84 kg

DRUGS (14)
  1. CYCLOPHOSPHAMIDE [Suspect]
     Indication: BREAST CANCER
     Route: 042
     Dates: start: 20051012, end: 20051123
  2. TAXOL [Suspect]
     Indication: BREAST CANCER
     Route: 042
     Dates: start: 20051214
  3. EPIRUBICIN [Suspect]
     Indication: BREAST CANCER
     Route: 042
     Dates: start: 20051012, end: 20051123
  4. ARANESP [Suspect]
     Indication: ERYTHROPENIA
     Route: 030
     Dates: start: 20051012
  5. XELODA [Suspect]
     Indication: BREAST CANCER
     Route: 048
     Dates: start: 20051214
  6. SAROTEN [Suspect]
     Indication: DEPRESSION
     Route: 048
  7. AVANDAMET [Suspect]
     Indication: DIABETES MELLITUS
     Route: 048
  8. TILIDINE HCL + NALOXONE HCL [Suspect]
     Indication: DEPRESSION
     Route: 048
  9. NAVOBAN [Concomitant]
     Dates: start: 20051012
  10. DEXAMETHASONE TAB [Concomitant]
     Indication: PREMEDICATION
     Route: 042
     Dates: start: 20051012
  11. TAVEGIL [Concomitant]
     Indication: PREMEDICATION
     Route: 042
     Dates: start: 20051012
  12. RANITIDINE [Concomitant]
     Indication: PREMEDICATION
     Route: 042
     Dates: start: 20051012
  13. FERRO SANOL [Concomitant]
     Dates: start: 20051010
  14. UROMITEXAN [Concomitant]

REACTIONS (1)
  - PULMONARY EMBOLISM [None]
